FAERS Safety Report 7716732-3 (Version None)
Quarter: 2011Q3

REPORT INFORMATION
  Report Type: 
  Country: None (occurrence: None)
  Receive Date: 20110829
  Receipt Date: 20110822
  Transmission Date: 20111222
  Serious: Yes (Death, Hospitalization)
  Sender: FDA-Public Use
  Company Number: US-CELGENEUS-163-21880-11080928

PATIENT
  Age: 85 Year
  Sex: Male
  Weight: 51.756 kg

DRUGS (9)
  1. VICODIN [Concomitant]
     Route: 065
  2. REVLIMID [Suspect]
     Indication: MULTIPLE MYELOMA
     Dosage: 10 MILLIGRAM
     Route: 048
     Dates: start: 20100910, end: 20110607
  3. FENTANYL [Concomitant]
     Indication: PAIN
     Route: 062
     Dates: start: 20100818, end: 20110618
  4. COLACE [Concomitant]
     Route: 065
  5. D5 1/2 NS [Concomitant]
     Route: 041
  6. PERCOCET [Concomitant]
     Indication: PAIN
     Route: 048
     Dates: start: 20100818, end: 20110618
  7. MORPHINE [Concomitant]
     Indication: PAIN
     Route: 041
     Dates: start: 20110616, end: 20110618
  8. MIRALAX [Concomitant]
     Route: 065
  9. TESSALON [Concomitant]
     Indication: COUGH
     Route: 065

REACTIONS (4)
  - WEIGHT DECREASED [None]
  - MULTIPLE MYELOMA [None]
  - INTESTINAL OBSTRUCTION [None]
  - PNEUMONIA [None]
